FAERS Safety Report 8018704-0 (Version None)
Quarter: 2012Q1

REPORT INFORMATION
  Report Type: 
  Country: None (occurrence: None)
  Receive Date: 20120103
  Receipt Date: 20120103
  Transmission Date: 20120608
  Serious: No
  Sender: FDA-Public Use
  Company Number: None

PATIENT
  Age: 42 Year
  Sex: Female
  Weight: 65.77 kg

DRUGS (1)
  1. ZICAM NASAL SWABS [Suspect]
     Indication: NASOPHARYNGITIS
     Dates: start: 20070901, end: 20081130

REACTIONS (2)
  - ANOSMIA [None]
  - HYPOGEUSIA [None]
